FAERS Safety Report 21969024 (Version 1)
Quarter: 2023Q1

REPORT INFORMATION
  Report Type: Spontaneous
  Country: US (occurrence: None)
  Receive Date: 20230207
  Receipt Date: 20230207
  Transmission Date: 20230418
  Serious: Yes (unspecified)
  Sender: FDA-Public Use
  Company Number: None

PATIENT
  Age: 78 Year
  Sex: Male
  Weight: 76.5 kg

DRUGS (9)
  1. ROCKLATAN [Suspect]
     Active Substance: LATANOPROST\NETARSUDIL MESYLATE
     Indication: Glaucoma
     Dosage: OTHER QUANTITY : 1 DROP(S);?FREQUENCY : AT BEDTIME;?
     Route: 047
     Dates: start: 20221110, end: 20230103
  2. OMEPRAZOLE [Concomitant]
     Active Substance: OMEPRAZOLE
  3. TAMSULOSIN [Concomitant]
     Active Substance: TAMSULOSIN
  4. ALLOPURINOL [Concomitant]
     Active Substance: ALLOPURINOL
  5. LOTEMAX [Concomitant]
     Active Substance: LOTEPREDNOL ETABONATE
  6. MOXIFLOXACIN [Concomitant]
     Active Substance: MOXIFLOXACIN
  7. VITAMINS [Concomitant]
     Active Substance: VITAMINS
  8. LUTEIN [Concomitant]
     Active Substance: LUTEIN
  9. ZEAXANTHIN [Concomitant]
     Active Substance: ZEAXANTHIN

REACTIONS (3)
  - Punctate keratitis [None]
  - Fatigue [None]
  - Chills [None]

NARRATIVE: CASE EVENT DATE: 20221222
